FAERS Safety Report 5206156-5 (Version None)
Quarter: 2006Q4

REPORT INFORMATION
  Report Type: 
  Country: None (occurrence: None)
  Receive Date: 20061026
  Receipt Date: 20060917
  Transmission Date: 20070319
  Serious: No
  Sender: FDA-Public Use
  Company Number: 2006113994

PATIENT
  Age: 37 Year
  Sex: Female
  Weight: 79.3795 kg

DRUGS (12)
  1. LYRICA [Suspect]
     Indication: COMPLEX REGIONAL PAIN SYNDROME
     Dosage: 100 MG (100 MG, 1 IN D)
     Dates: start: 20060830, end: 20060901
  2. PHENOBARBITAL TAB [Concomitant]
  3. VALIUM [Concomitant]
  4. NORVASC [Concomitant]
  5. LASIX [Concomitant]
  6. ACTOS [Concomitant]
  7. MORPHINE [Concomitant]
  8. PROVERA [Concomitant]
  9. ACTIQ (SUGAR-FREE) [Concomitant]
  10. ATROVENT [Concomitant]
  11. ALUPENT [Concomitant]
  12. EPINEPHRINE [Concomitant]

REACTIONS (6)
  - DIZZINESS [None]
  - NAUSEA [None]
  - NEUROLOGICAL SYMPTOM [None]
  - PRURITUS [None]
  - SKIN ULCER [None]
  - VOMITING [None]
